FAERS Safety Report 6900753-4 (Version None)
Quarter: 2010Q3

REPORT INFORMATION
  Report Type: 
  Country: None (occurrence: None)
  Receive Date: 20100730
  Receipt Date: 20100604
  Transmission Date: 20110219
  Serious: Yes (Other)
  Sender: FDA-Public Use
  Company Number: JP-1181457

PATIENT
  Age: 52 Year
  Sex: Male

DRUGS (7)
  1. TRAVATAN Z [Suspect]
     Indication: OPEN ANGLE GLAUCOMA
     Dosage: 1 GTT QD OU
     Route: 047
     Dates: start: 20100215, end: 20100329
  2. CINACALCET HYDROCHLORIDE [Concomitant]
  3. PHOSBLOCK (SEVELAMER HYDROCHLORIDE) [Concomitant]
  4. EPADEL (EIXOSAPENTAENOIC ACID) [Concomitant]
  5. KALIMATE (CALCIUM POLYSTYRENE SULFONATE) [Concomitant]
  6. LANSOPRAZOLE [Concomitant]
  7. ACECOL (TEMOCAPRIL HYDROCHLORIDE) [Concomitant]

REACTIONS (1)
  - ARRHYTHMIA [None]
